FAERS Safety Report 4301887-3 (Version None)
Quarter: 2004Q1

REPORT INFORMATION
  Report Type: 
  Country: None (occurrence: None)
  Receive Date: 20040223
  Receipt Date: 20030715
  Transmission Date: 20041129
  Serious: Yes (Life-Threatening, Hospitalization, Disabling)
  Sender: FDA-Public Use
  Company Number: WAES 0307USA01945

PATIENT
  Age: 61 Year
  Sex: Female

DRUGS (3)
  1. [THERAPY UNSPECIFIED] [Concomitant]
     Indication: BLOOD PRESSURE
  2. VIOXX [Suspect]
     Indication: KNEE ARTHROPLASTY
     Route: 048
     Dates: start: 20021114, end: 20021101
  3. VIOXX [Suspect]
     Indication: PAIN
     Route: 048
     Dates: start: 20021114, end: 20021101

REACTIONS (4)
  - CARDIAC FAILURE CONGESTIVE [None]
  - DIALYSIS [None]
  - RENAL FAILURE [None]
  - RENAL INJURY [None]
